FAERS Safety Report 18206584 (Version 1)
Quarter: 2020Q3

REPORT INFORMATION
  Report Type: Spontaneous
  Country: US (occurrence: US)
  Receive Date: 20200827
  Receipt Date: 20200827
  Transmission Date: 20201103
  Serious: Yes (Hospitalization)
  Sender: FDA-Public Use
  Company Number: None

PATIENT
  Age: 86 Year
  Sex: Female
  Weight: 70.3 kg

DRUGS (13)
  1. INSULIN GLARGINE 40 UNITS [Concomitant]
     Dates: start: 20200820
  2. PEG 3350 17G [Concomitant]
     Dates: start: 20200819
  3. DOCUSATE SODIUM 100MG [Concomitant]
     Active Substance: DOCUSATE SODIUM
     Dates: start: 20200819
  4. ASPIRIN 81MG [Concomitant]
     Active Substance: ASPIRIN
     Dates: start: 20200819
  5. CEFTRIAXONE 1G [Concomitant]
     Dates: start: 20200820, end: 20200824
  6. PANTOPRAZOLE 40MG TAB [Concomitant]
     Dates: start: 20200820
  7. REMDESIVIR. [Suspect]
     Active Substance: REMDESIVIR
     Indication: COVID-19
     Route: 042
     Dates: start: 20200822, end: 20200823
  8. ATORVASTATIN 40MG [Concomitant]
     Active Substance: ATORVASTATIN
     Dates: start: 20200819
  9. DEXAMETHASONE 6MG [Concomitant]
     Dates: start: 20200820
  10. PROPOFOL DRIP [Concomitant]
     Active Substance: PROPOFOL
     Dates: start: 20200822
  11. AZITHROMYCIN 500MG [Concomitant]
     Active Substance: AZITHROMYCIN
     Dates: start: 20200820, end: 20200824
  12. ACETAMINOPHEN 325MG [Concomitant]
     Dates: start: 20200822, end: 20200823
  13. HEPARIN [Concomitant]
     Active Substance: HEPARIN SODIUM
     Dates: start: 20200819

REACTIONS (1)
  - Blood creatine increased [None]

NARRATIVE: CASE EVENT DATE: 20200823
